FAERS Safety Report 18683649 (Version 1)
Quarter: 2020Q4

REPORT INFORMATION
  Report Type: Spontaneous
  Country: US (occurrence: US)
  Receive Date: 20201230
  Receipt Date: 20201230
  Transmission Date: 20210114
  Serious: No
  Sender: FDA-Public Use
  Company Number: None

PATIENT
  Age: 42 Year
  Sex: Female
  Weight: 63 kg

DRUGS (6)
  1. KESIMPTA [Suspect]
     Active Substance: OFATUMUMAB
     Indication: MULTIPLE SCLEROSIS
     Dosage: ?          QUANTITY:1 INJECTION(S);OTHER FREQUENCY:WEEKLY FOR 3WKS;?
     Route: 058
     Dates: start: 20201211
  2. VITAMINS [Concomitant]
     Active Substance: VITAMINS
  3. BACLOFEN. [Concomitant]
     Active Substance: BACLOFEN
  4. PRILOSEC [Concomitant]
     Active Substance: OMEPRAZOLE MAGNESIUM
  5. CELEXA [Concomitant]
     Active Substance: CITALOPRAM HYDROBROMIDE
  6. TRAZODONE [Concomitant]
     Active Substance: TRAZODONE HYDROCHLORIDE

REACTIONS (7)
  - Breast swelling [None]
  - Fatigue [None]
  - Breast tenderness [None]
  - Headache [None]
  - Post procedural complication [None]
  - Nausea [None]
  - Hot flush [None]

NARRATIVE: CASE EVENT DATE: 20201211
